FAERS Safety Report 9472503 (Version 3)
Quarter: 2014Q3

REPORT INFORMATION
  Report Type: Spontaneous
  Country: JP (occurrence: JP)
  Receive Date: 20130823
  Receipt Date: 20140812
  Transmission Date: 20150326
  Serious: Yes (Other)
  Sender: FDA-Public Use
  Company Number: PHHY2013JP090303

PATIENT
  Age: 49 Year
  Sex: Female

DRUGS (1)
  1. GILENYA [Suspect]
     Active Substance: FINGOLIMOD HYDROCHLORIDE
     Indication: MULTIPLE SCLEROSIS
     Dosage: 1.25 MG, QD
     Route: 048

REACTIONS (8)
  - Altered state of consciousness [Unknown]
  - Neurologic neglect syndrome [Unknown]
  - Aphasia [Unknown]
  - White matter lesion [Unknown]
  - Concomitant disease aggravated [Unknown]
  - Headache [Unknown]
  - Neuromyelitis optica [Unknown]
  - Hemiparesis [Unknown]
